FAERS Safety Report 13918018 (Version 2)
Quarter: 2021Q4

REPORT INFORMATION
  Report Type: Spontaneous
  Country: US (occurrence: US)
  Receive Date: 20170829
  Receipt Date: 20211018
  Transmission Date: 20220304
  Serious: No
  Sender: FDA-Public Use
  Company Number: US-SA-2016SA230341

PATIENT
  Age: 61 Year
  Sex: Female

DRUGS (1)
  1. FABRAZYME [Suspect]
     Active Substance: AGALSIDASE BETA
     Indication: Fabry^s disease
     Dosage: 70 MG, QOW
     Route: 042
     Dates: end: 20161212

REACTIONS (2)
  - Gastrointestinal disorder [Unknown]
  - Malaise [Unknown]

NARRATIVE: CASE EVENT DATE: 20160101
